FAERS Safety Report 5265091-7 (Version None)
Quarter: 2007Q1

REPORT INFORMATION
  Report Type: 
  Country: None (occurrence: None)
  Receive Date: 20070314
  Receipt Date: 20070301
  Transmission Date: 20070707
  Serious: Yes (Life-Threatening, Hospitalization)
  Sender: FDA-Public Use
  Company Number: GBWYE837001MAR07

PATIENT
  Age: 44 Year
  Weight: 65 kg

DRUGS (5)
  1. ENBREL [Suspect]
     Indication: RHEUMATOID ARTHRITIS
     Route: 058
     Dates: end: 20070213
  2. METHOTREXATE [Suspect]
     Indication: RHEUMATOID ARTHRITIS
     Dosage: 20 MG WEEKLY
     Route: 048
     Dates: end: 20070213
  3. PREDNISOLONE [Suspect]
     Indication: RHEUMATOID ARTHRITIS
     Dosage: 25 MG A DAY
  4. RISEDRONATE SODIUM [Concomitant]
     Dosage: UNKNOWN
  5. FOLIC ACID [Concomitant]
     Dosage: UNKNOWN

REACTIONS (4)
  - HYPOTENSION [None]
  - PNEUMONIA BACTERIAL [None]
  - SERRATIA INFECTION [None]
  - SICKLE CELL ANAEMIA WITH CRISIS [None]
